FAERS Safety Report 16576530 (Version 1)
Quarter: 2019Q3

REPORT INFORMATION
  Report Type: Other
  Country: US (occurrence: US)
  Receive Date: 20190716
  Receipt Date: 20190716
  Transmission Date: 20191004
  Serious: No
  Sender: FDA-Public Use
  Company Number: US-SWEDISH ORPHAN BIOVITRUM-2018US1531

PATIENT
  Sex: Female

DRUGS (3)
  1. PRENATAL VITAMINS [Concomitant]
     Active Substance: VITAMINS
  2. ORFADIN [Suspect]
     Active Substance: NITISINONE
  3. ORFADIN [Suspect]
     Active Substance: NITISINONE
     Indication: TYROSINAEMIA
     Dosage: 20MG X 3 QAM AND 20MG X 2 QPM.
     Route: 048
     Dates: start: 20170126

REACTIONS (1)
  - Vaginal haemorrhage [Recovered/Resolved]
